FAERS Safety Report 8214647-8 (Version None)
Quarter: 2012Q1

REPORT INFORMATION
  Report Type: 
  Country: None (occurrence: None)
  Receive Date: 20120316
  Receipt Date: 20120313
  Transmission Date: 20120608
  Serious: Yes (Life-Threatening, Hospitalization)
  Sender: FDA-Public Use
  Company Number: NL-B.I. PHARMACEUTICALS,INC./RIDGEFIELD-2012-NL-00126NL

PATIENT
  Sex: Male
  Weight: 91 kg

DRUGS (10)
  1. INSULATARD FLEXPEN INJ [Concomitant]
     Dosage: VIA FLEXPEN INJ: MORNING: 42EH, EVENING: 34EH
  2. ENALAPRIL [Concomitant]
     Dosage: 20 MG
  3. ALENDRONINEZUUR [Concomitant]
     Dosage: 70 MG
  4. OMEPRAZOLE [Concomitant]
     Dosage: 40 MG
  5. METFORMIN HCL [Concomitant]
     Dosage: 2550 MG
  6. SPIRIVA [Suspect]
     Dosage: 18 MCG
     Route: 055
  7. SELOKOMB ZOC [Concomitant]
     Dosage: 100 MG
  8. PREDISOLON [Concomitant]
     Indication: INTERSTITIAL LUNG DISEASE
     Dosage: 20 MG
  9. PRADAXA [Suspect]
     Indication: ATRIAL FIBRILLATION
     Dosage: 220 MG
     Dates: start: 20120213, end: 20120219
  10. LASIX [Concomitant]
     Dosage: 40 MG

REACTIONS (1)
  - GASTROINTESTINAL HAEMORRHAGE [None]
